FAERS Safety Report 10151819 (Version 2)
Quarter: 2014Q2

REPORT INFORMATION
  Report Type: Report from Study
  Country: US (occurrence: US)
  Receive Date: 20140505
  Receipt Date: 20140602
  Transmission Date: 20141212
  Serious: Yes (Hospitalization)
  Sender: FDA-Public Use
  Company Number: US-BRISTOL-MYERS SQUIBB COMPANY-20669578

PATIENT
  Age: 52 Year
  Sex: Male
  Weight: 120.18 kg

DRUGS (5)
  1. ABATACEPT SUBQ INJECTION 125MG/ML [Suspect]
     Indication: RHEUMATOID ARTHRITIS
     Dosage: LAST DOSE ON:27APR14?1DF=125MG/ML?ONGOING
     Route: 058
     Dates: start: 2014
  2. PLAQUENIL [Concomitant]
     Route: 048
  3. METHOTREXATE [Concomitant]
     Dosage: INJ
     Route: 058
  4. FOLIC ACID [Concomitant]
     Route: 048
  5. POTASSIUM [Concomitant]
     Route: 048

REACTIONS (6)
  - Bronchitis [Unknown]
  - Asthma [Unknown]
  - Headache [Unknown]
  - Nausea [Recovering/Resolving]
  - Abdominal pain [Unknown]
  - Fatigue [Recovering/Resolving]
